FAERS Safety Report 25602743 (Version 2)
Quarter: 2025Q3

REPORT INFORMATION
  Report Type: Spontaneous
  Country: US (occurrence: US)
  Receive Date: 20250724
  Receipt Date: 20250917
  Transmission Date: 20251021
  Serious: No
  Sender: SANOFI AVENTIS
  Company Number: US-SA-2025SA212342

PATIENT
  Sex: Male

DRUGS (5)
  1. DUPIXENT [Suspect]
     Active Substance: DUPILUMAB
     Indication: Eczema infantile
     Dosage: 200 MG, Q4W
     Route: 058
  2. A-HYDROCORT [Concomitant]
     Active Substance: HYDROCORTISONE SODIUM SUCCINATE
  3. KETOCONAZOLE [Concomitant]
     Active Substance: KETOCONAZOLE
  4. MUPIROCIN [Concomitant]
     Active Substance: MUPIROCIN
  5. Triamcinolon [Concomitant]

REACTIONS (1)
  - Sleep disorder due to a general medical condition [Unknown]
